FAERS Safety Report 5886249-X (Version None)
Quarter: 2008Q3

REPORT INFORMATION
  Report Type: 
  Country: None (occurrence: None)
  Receive Date: 20080912
  Receipt Date: 20080903
  Transmission Date: 20090109
  Serious: Yes (Death, Life-Threatening, Hospitalization)
  Sender: FDA-Public Use
  Company Number: 002303

PATIENT
  Age: 48 Year
  Sex: Female

DRUGS (7)
  1. BUSULFEX [Suspect]
     Indication: STEM CELL TRANSPLANT
     Dosage: 27.72ML INTRAVENOUS
     Route: 042
     Dates: start: 20070915, end: 20070916
  2. GANCICLOVIR [Suspect]
  3. FLUDARABINE PHOSPHATE [Concomitant]
  4. VALPROATE SODIUM [Concomitant]
  5. LENOGRASTIM (LENOGRASTIM) [Concomitant]
  6. METHOTREXATE [Concomitant]
  7. TACROLIMUS [Concomitant]

REACTIONS (11)
  - ANOREXIA [None]
  - BONE MARROW TRANSPLANT REJECTION [None]
  - DIARRHOEA [None]
  - FEBRILE NEUTROPENIA [None]
  - GASTROINTESTINAL HAEMORRHAGE [None]
  - GRAFT VERSUS HOST DISEASE [None]
  - MALAISE [None]
  - NAUSEA [None]
  - RENAL DISORDER [None]
  - STOMATITIS [None]
  - THROMBOTIC MICROANGIOPATHY [None]
